FAERS Safety Report 18484836 (Version 2)
Quarter: 2021Q1

REPORT INFORMATION
  Report Type: Report from Study
  Country: US (occurrence: US)
  Receive Date: 20201110
  Receipt Date: 20210115
  Transmission Date: 20210419
  Serious: Yes (Hospitalization)
  Sender: FDA-Public Use
  Company Number: US-BIOGEN-2020BI00943346

PATIENT
  Age: 34 Year
  Sex: Female

DRUGS (1)
  1. TYSABRI [Suspect]
     Active Substance: NATALIZUMAB
     Indication: MULTIPLE SCLEROSIS
     Dosage: INFUSED OVER ONE HOUR
     Route: 042
     Dates: start: 20200218, end: 20200514

REACTIONS (1)
  - Burning sensation [Recovered/Resolved]

NARRATIVE: CASE EVENT DATE: 202006
